FAERS Safety Report 25040060 (Version 2)
Quarter: 2025Q1

REPORT INFORMATION
  Report Type: Report from Study
  Country: GB (occurrence: GB)
  Receive Date: 20250305
  Receipt Date: 20250328
  Transmission Date: 20250409
  Serious: Yes (Other)
  Sender: ABBVIE
  Company Number: GB-ABBVIE-6159791

PATIENT
  Sex: Female

DRUGS (1)
  1. SKYRIZI [Suspect]
     Active Substance: RISANKIZUMAB-RZAA
     Indication: Psoriasis
     Dosage: SKYRIZI 150MG/1.0ML PFP
     Route: 058
     Dates: end: 20250228

REACTIONS (2)
  - Surgery [Unknown]
  - Wound [Not Recovered/Not Resolved]
